FAERS Safety Report 8531242-1 (Version None)
Quarter: 2012Q3

REPORT INFORMATION
  Report Type: 
  Country: None (occurrence: None)
  Receive Date: 20120723
  Receipt Date: 20120711
  Transmission Date: 20120928
  Serious: Yes (Other)
  Sender: FDA-Public Use
  Company Number: JP-VERTEX PHARMACEUTICALS INC.-AE-2012-010544

PATIENT
  Age: 47 Year
  Sex: Male

DRUGS (3)
  1. PEGINTERFERON ALFA-2B [Concomitant]
     Route: 058
     Dates: start: 20120703
  2. TELAVIC (TELAPREVIR) [Suspect]
     Route: 048
     Dates: start: 20120703
  3. RIBAVIRIN [Concomitant]
     Route: 048
     Dates: start: 20120703

REACTIONS (1)
  - RENAL IMPAIRMENT [None]
